FAERS Safety Report 4569352-6 (Version None)
Quarter: 2005Q1

REPORT INFORMATION
  Report Type: 
  Country: None (occurrence: None)
  Receive Date: 20050203
  Receipt Date: 20050131
  Transmission Date: 20050727
  Serious: Yes (Hospitalization)
  Sender: FDA-Public Use
  Company Number: FR-GLAXOSMITHKLINE-B0369456A

PATIENT
  Age: 73 Year
  Sex: Male

DRUGS (3)
  1. AUGMENTIN [Suspect]
     Dosage: 1UNIT PER DAY
     Route: 048
     Dates: start: 20041118, end: 20041122
  2. KEPPRA [Suspect]
     Dosage: 1UNIT PER DAY
     Route: 048
     Dates: start: 20041110, end: 20041124
  3. DIHYDAN [Suspect]
     Indication: EPILEPSY
     Dosage: 300MG PER DAY
     Route: 048
     Dates: start: 20041028, end: 20041124

REACTIONS (4)
  - EOSINOPHIL COUNT INCREASED [None]
  - FACE OEDEMA [None]
  - PYREXIA [None]
  - RASH MACULO-PAPULAR [None]
